FAERS Safety Report 6948365-0 (Version None)
Quarter: 2010Q3

REPORT INFORMATION
  Report Type: 
  Country: None (occurrence: None)
  Receive Date: 20100828
  Receipt Date: 20091111
  Transmission Date: 20110219
  Serious: No
  Sender: FDA-Public Use
  Company Number: US-ABBOTT-09P-163-0605946-00

PATIENT

DRUGS (8)
  1. NIASPAN [Suspect]
     Indication: BLOOD CHOLESTEROL INCREASED
     Dates: start: 20091022
  2. TRAMADOL HCL [Concomitant]
     Indication: ARTHRALGIA
     Dates: start: 20070101
  3. TRAMADOL HCL [Concomitant]
     Indication: BONE PAIN
  4. HYDROCODONE BITARTRATE [Concomitant]
     Indication: ARTHRALGIA
     Dates: start: 20070101
  5. HYDROCODONE BITARTRATE [Concomitant]
     Indication: BONE PAIN
  6. SIMVASTATIN [Concomitant]
     Indication: BLOOD CHOLESTEROL INCREASED
     Dates: start: 20091022
  7. SIMVASTATIN [Concomitant]
     Dates: end: 20091020
  8. ASPIRIN [Concomitant]
     Indication: CORONARY ARTERIAL STENT INSERTION

REACTIONS (2)
  - PAIN IN EXTREMITY [None]
  - PERIPHERAL COLDNESS [None]
